FAERS Safety Report 20226784 (Version 1)
Quarter: 2021Q4

REPORT INFORMATION
  Report Type: Spontaneous
  Country: US (occurrence: US)
  Receive Date: 20211224
  Receipt Date: 20211224
  Transmission Date: 20220303
  Serious: No
  Sender: FDA-Public Use
  Company Number: US-BEH-2021139776

PATIENT
  Age: 72 Year
  Sex: Female
  Weight: 74.25 kg

DRUGS (3)
  1. HIZENTRA [Suspect]
     Active Substance: HUMAN IMMUNOGLOBULIN G
     Indication: Secondary immunodeficiency
     Dosage: 10 GRAM
     Route: 058
  2. HIZENTRA [Suspect]
     Active Substance: HUMAN IMMUNOGLOBULIN G
     Indication: Selective IgA immunodeficiency
  3. HIZENTRA [Suspect]
     Active Substance: HUMAN IMMUNOGLOBULIN G
     Indication: Selective IgM immunodeficiency

REACTIONS (6)
  - Injection site erythema [Unknown]
  - Recalled product administered [Unknown]
  - Injection site pruritus [Unknown]
  - Recalled product administered [Unknown]
  - Injection site swelling [Unknown]
  - Recalled product administered [Unknown]
